FAERS Safety Report 25126202 (Version 1)
Quarter: 2025Q1

REPORT INFORMATION
  Report Type: Spontaneous
  Country: CN (occurrence: CN)
  Receive Date: 20250326
  Receipt Date: 20250326
  Transmission Date: 20250409
  Serious: Yes (Hospitalization)
  Sender: ALEXION PHARMACEUTICALS
  Company Number: CN-ASTRAZENECA-202503CHN019715CN

PATIENT
  Age: 69 Year
  Weight: 63.4 kg

DRUGS (2)
  1. BUDESONIDE [Suspect]
     Active Substance: BUDESONIDE
     Indication: Productive cough
     Dosage: 2 MILLIGRAM, BID
  2. ACETYLCYSTEINE [Concomitant]
     Active Substance: ACETYLCYSTEINE
     Indication: Productive cough
     Dosage: 0.3 GRAM, BID

REACTIONS (3)
  - Cough [Recovering/Resolving]
  - Breath holding [Recovered/Resolved]
  - Dyspnoea [Recovered/Resolved]
